FAERS Safety Report 17061444 (Version 2)
Quarter: 2019Q4

REPORT INFORMATION
  Report Type: Spontaneous
  Country: US (occurrence: US)
  Receive Date: 20191121
  Receipt Date: 20191230
  Transmission Date: 20200122
  Serious: No
  Sender: FDA-Public Use
  Company Number: US-BAUSCH-BL-2019-054979

PATIENT
  Sex: Female

DRUGS (1)
  1. GENERIC GLUMETZA [Suspect]
     Active Substance: METFORMIN HYDROCHLORIDE
     Indication: DIABETES MELLITUS
     Dosage: 90 DAYS COURSE; PURPLE COLOR AND SORT OF DIAMOND SIZE
     Route: 048
     Dates: start: 2019, end: 2019

REACTIONS (4)
  - Laziness [Not Recovered/Not Resolved]
  - Therapeutic product effect incomplete [Unknown]
  - Product colour issue [Unknown]
  - Product size issue [Unknown]

NARRATIVE: CASE EVENT DATE: 2019
